FAERS Safety Report 6068037-7 (Version None)
Quarter: 2009Q1

REPORT INFORMATION
  Report Type: 
  Country: None (occurrence: None)
  Receive Date: 20090206
  Receipt Date: 20090203
  Transmission Date: 20090719
  Serious: Yes (Other)
  Sender: FDA-Public Use
  Company Number: DE-BRISTOL-MYERS SQUIBB COMPANY-14492763

PATIENT
  Age: 55 Year
  Sex: Female

DRUGS (4)
  1. PRAVASTATIN SODIUM [Suspect]
     Indication: HYPERLIPIDAEMIA
     Route: 048
     Dates: start: 20080829, end: 20081126
  2. CARMEN [Suspect]
     Indication: HYPERTENSION
     Dosage: 1 DOSAGE FORM = 10.INCREASED TO 1/2 TABS/D
     Route: 048
     Dates: start: 20080829, end: 20081126
  3. KINZALMONO [Suspect]
     Indication: HYPERTENSION
     Route: 048
     Dates: start: 20080826, end: 20081126
  4. BISOHEXAL [Concomitant]

REACTIONS (3)
  - ALVEOLITIS [None]
  - LEUKOCYTOSIS [None]
  - RED BLOOD CELL SEDIMENTATION RATE INCREASED [None]
